FAERS Safety Report 9431382 (Version 1)
Quarter: 2013Q3

REPORT INFORMATION
  Report Type: Spontaneous
  Country: US (occurrence: US)
  Receive Date: 20130730
  Receipt Date: 20130730
  Transmission Date: 20140515
  Serious: No
  Sender: FDA-Public Use
  Company Number: US-US-EMD SERONO, INC.-7135320

PATIENT
  Sex: Female
  Weight: 80 kg

DRUGS (5)
  1. REBIF [Suspect]
     Indication: PRODUCT USED FOR UNKNOWN INDICATION
     Route: 058
     Dates: start: 201205
  2. REBIF [Suspect]
     Route: 058
  3. HYDROCHLOROTHIAZIDE [Concomitant]
     Indication: HYPERTENSION
     Dates: start: 2005
  4. NORVASC                            /00972401/ [Concomitant]
     Indication: HYPERTENSION
     Dates: start: 2005
  5. LEVOTHYROXINE                      /00068002/ [Concomitant]
     Indication: HYPOTHYROIDISM
     Dates: start: 1998

REACTIONS (1)
  - Influenza like illness [Recovered/Resolved]
